FAERS Safety Report 13419026 (Version 4)
Quarter: 2023Q1

REPORT INFORMATION
  Report Type: Spontaneous
  Country: US (occurrence: US)
  Receive Date: 20170407
  Receipt Date: 20230202
  Transmission Date: 20230418
  Serious: No
  Sender: FDA-Public Use
  Company Number: US-JNJFOC-20170319719

PATIENT
  Sex: Male

DRUGS (5)
  1. RISPERDAL [Suspect]
     Active Substance: RISPERIDONE
     Indication: Schizophrenia
     Dosage: AT BED TIME
     Route: 048
     Dates: start: 20100802, end: 20101228
  2. RISPERIDONE [Suspect]
     Active Substance: RISPERIDONE
     Indication: Schizophrenia
     Dosage: AT VARYING DOSES (OF 1 MG TO 2 MG) AND FREQUENCIES
     Route: 048
     Dates: start: 20100309, end: 20100713
  3. RISPERIDONE [Suspect]
     Active Substance: RISPERIDONE
     Dosage: AT VARYING FREQUENCIES
     Route: 048
     Dates: start: 20100901, end: 20101220
  4. THORAZINE [Concomitant]
     Active Substance: CHLORPROMAZINE
     Indication: Product used for unknown indication
     Route: 065
     Dates: start: 2010
  5. HALDOL [Concomitant]
     Active Substance: HALOPERIDOL
     Indication: Product used for unknown indication

REACTIONS (2)
  - Emotional distress [Unknown]
  - Gynaecomastia [Unknown]
